FAERS Safety Report 4466343-0 (Version None)
Quarter: 2004Q4

REPORT INFORMATION
  Report Type: 
  Country: None (occurrence: None)
  Receive Date: 20041005
  Receipt Date: 20040929
  Transmission Date: 20050328
  Serious: Yes (Death, Life-Threatening, Hospitalization)
  Sender: FDA-Public Use
  Company Number: FR-GLAXOSMITHKLINE-B0346619A

PATIENT
  Age: 82 Year
  Sex: Male

DRUGS (9)
  1. AUGMENTIN [Suspect]
     Indication: DYSPNOEA
     Route: 048
     Dates: start: 20040615
  2. DIANTALVIC [Suspect]
     Route: 048
     Dates: start: 20040617, end: 20040704
  3. LASILIX 40 MG [Suspect]
     Dosage: 40MG THREE TIMES PER DAY
     Route: 048
     Dates: start: 20040617
  4. CIPROFLOXACIN [Suspect]
     Indication: DYSPNOEA
     Route: 050
  5. MOPRAL [Suspect]
     Dosage: 20MG PER DAY
     Route: 048
     Dates: start: 20040617, end: 20040704
  6. DILTIAZEM HCL [Suspect]
     Route: 065
     Dates: end: 20040627
  7. DIGOXIN [Suspect]
     Route: 048
  8. CORTANCYL [Suspect]
     Route: 048
  9. TAZOCILLINE [Suspect]
     Indication: LUNG DISORDER
     Route: 042
     Dates: start: 20040624, end: 20040702

REACTIONS (18)
  - ALANINE AMINOTRANSFERASE INCREASED [None]
  - ANGIOPATHY [None]
  - ASPARTATE AMINOTRANSFERASE INCREASED [None]
  - BLOOD ALKALINE PHOSPHATASE INCREASED [None]
  - CARDIOMEGALY [None]
  - DYSPNOEA EXACERBATED [None]
  - FACTOR V DEFICIENCY [None]
  - GAMMA-GLUTAMYLTRANSFERASE INCREASED [None]
  - GENERAL PHYSICAL HEALTH DETERIORATION [None]
  - HEPATITIS FULMINANT [None]
  - INFECTION [None]
  - INFLAMMATION [None]
  - LIVER DISORDER [None]
  - PROTEUS INFECTION [None]
  - PROTHROMBIN LEVEL DECREASED [None]
  - PULMONARY ARTERIAL PRESSURE INCREASED [None]
  - PULMONARY FIBROSIS [None]
  - SPUTUM CULTURE POSITIVE [None]
